FAERS Safety Report 23850682 (Version 1)
Quarter: 2024Q2

REPORT INFORMATION
  Report Type: Spontaneous
  Country: BR (occurrence: BR)
  Receive Date: 20240513
  Receipt Date: 20240513
  Transmission Date: 20240715
  Serious: Yes (Other)
  Sender: FDA-Public Use
  Company Number: BR-BoehringerIngelheim-2024-BI-026528

PATIENT
  Sex: Female

DRUGS (5)
  1. GLYXAMBI [Suspect]
     Active Substance: EMPAGLIFLOZIN\LINAGLIPTIN
     Indication: Type 2 diabetes mellitus
     Dosage: 1 TABLET ORALLY AFTER BREAKFAST
     Route: 048
  2. GLIFAGE [Concomitant]
     Active Substance: METFORMIN HYDROCHLORIDE
     Indication: Type 2 diabetes mellitus
     Dosage: 2 TABLETS IN THE MORNING (IN CONJUNCTION WITH GLYXAMBI) AND 2 TABLETS ORALLY AT NIGHT
     Route: 048
  3. LOSARTAN [Concomitant]
     Active Substance: LOSARTAN
     Indication: Hypertension
     Dosage: 1 TABLET A DAY IN THE MORNING, ORALLY
     Route: 048
  4. HYDROCHLOROTHIAZIDE [Concomitant]
     Active Substance: HYDROCHLOROTHIAZIDE
     Indication: Hypertension
     Dosage: 1 TABLET A DAY
     Route: 048
  5. LEVOTHYROXINE [Concomitant]
     Active Substance: LEVOTHYROXINE\LEVOTHYROXINE SODIUM
     Indication: Thyroid disorder
     Dosage: 1 TABLET A DAY ORALLY ON AN EMPTY STOMACH
     Route: 048
     Dates: start: 2014

REACTIONS (5)
  - Weight decreased [Recovered/Resolved]
  - Blood triglycerides increased [Unknown]
  - Blood glucose increased [Not Recovered/Not Resolved]
  - Nervousness [Unknown]
  - Labyrinthitis [Unknown]
